FAERS Safety Report 5852184-6 (Version None)
Quarter: 2008Q3

REPORT INFORMATION
  Report Type: 
  Country: None (occurrence: None)
  Receive Date: 20080819
  Receipt Date: 20080807
  Transmission Date: 20090109
  Serious: Yes (Hospitalization)
  Sender: FDA-Public Use
  Company Number: 2008BI020487

PATIENT
  Age: 61 Year
  Sex: Female

DRUGS (2)
  1. AVONEX [Suspect]
     Indication: MULTIPLE SCLEROSIS
     Dosage: 30 UG; QW; IM; 30 UG; QW; IM
     Route: 030
     Dates: start: 20000917, end: 20060208
  2. AVONEX [Suspect]
     Indication: MULTIPLE SCLEROSIS
     Dosage: 30 UG; QW; IM; 30 UG; QW; IM
     Route: 030
     Dates: start: 20070228

REACTIONS (8)
  - ANAEMIA [None]
  - BLOOD MAGNESIUM DECREASED [None]
  - BLOOD POTASSIUM DECREASED [None]
  - CANDIDIASIS [None]
  - GASTROINTESTINAL DISORDER [None]
  - INFECTION [None]
  - OROPHARYNGEAL BLISTERING [None]
  - PNEUMONIA [None]
